FAERS Safety Report 9688289 (Version 1)
Quarter: 2013Q4

REPORT INFORMATION
  Report Type: Spontaneous
  Country: US (occurrence: None)
  Receive Date: 20131113
  Receipt Date: 20131113
  Transmission Date: 20140711
  Serious: Yes (Other)
  Sender: FDA-Public Use
  Company Number: None

PATIENT
  Age: 62 Year
  Sex: Female
  Weight: 58.06 kg

DRUGS (1)
  1. RESTASIS [Suspect]
     Indication: DRY EYE
     Dosage: ONE DROP PER EYE, ONCE DAILY, INTO THE EYE
     Dates: start: 20110316, end: 20111015

REACTIONS (3)
  - Migraine with aura [None]
  - Dry eye [None]
  - Condition aggravated [None]
